FAERS Safety Report 22066997 (Version 1)
Quarter: 2023Q1

REPORT INFORMATION
  Report Type: Spontaneous
  Country: US (occurrence: US)
  Receive Date: 20230306
  Receipt Date: 20230306
  Transmission Date: 20230417
  Serious: Yes (Other)
  Sender: FDA-Public Use
  Company Number: US-PLXPHARMA-2022-PLX-00014

PATIENT

DRUGS (1)
  1. VAZALORE [Suspect]
     Active Substance: ASPIRIN
     Indication: Cardiovascular event prophylaxis
     Route: 048
     Dates: start: 20220131, end: 20220131

REACTIONS (7)
  - Pruritus [None]
  - Anaphylactic reaction [None]
  - Pharyngeal swelling [None]
  - Mouth swelling [None]
  - Heart rate increased [None]
  - Insomnia [None]
  - Fatigue [Unknown]

NARRATIVE: CASE EVENT DATE: 20220131
